FAERS Safety Report 7645562-6 (Version None)
Quarter: 2011Q3

REPORT INFORMATION
  Report Type: 
  Country: None (occurrence: None)
  Receive Date: 20110729
  Receipt Date: 20110725
  Transmission Date: 20111222
  Serious: Yes (Death)
  Sender: FDA-Public Use
  Company Number: CA-ROCHE-792181

PATIENT
  Age: 46 Year
  Sex: Male

DRUGS (6)
  1. ALCOHOL [Suspect]
     Route: 048
  2. OXYCODONE HCL [Suspect]
     Route: 048
  3. CITALOPRAM HYDROBROMIDE [Suspect]
     Route: 048
  4. NORTRIPTYLINE HCL [Suspect]
     Route: 048
  5. DIAZEPAM [Suspect]
     Route: 048
  6. AMITRIPTYLINE HCL [Suspect]
     Route: 048

REACTIONS (2)
  - SUBSTANCE ABUSE [None]
  - TOXICITY TO VARIOUS AGENTS [None]
